FAERS Safety Report 13882407 (Version 1)
Quarter: 2017Q3

REPORT INFORMATION
  Report Type: Spontaneous
  Country: US (occurrence: US)
  Receive Date: 20170818
  Receipt Date: 20170818
  Transmission Date: 20171127
  Serious: No
  Sender: FDA-Public Use
  Company Number: US-TEVA-798049ACC

PATIENT
  Age: 16 Year
  Sex: Female
  Weight: 55.39 kg

DRUGS (2)
  1. PLAN B ONE-STEP [Suspect]
     Active Substance: LEVONORGESTREL
     Indication: POST COITAL CONTRACEPTION
     Dates: start: 20170617, end: 20170617
  2. PLAN B ONE-STEP [Suspect]
     Active Substance: LEVONORGESTREL
     Dates: start: 20170714, end: 20170714

REACTIONS (6)
  - Prescription drug used without a prescription [Unknown]
  - Menstruation irregular [Recovered/Resolved]
  - Back pain [Not Recovered/Not Resolved]
  - Vaginal haemorrhage [Not Recovered/Not Resolved]
  - Intentional product misuse [Unknown]
  - Adnexa uteri pain [Not Recovered/Not Resolved]

NARRATIVE: CASE EVENT DATE: 20170716
